FAERS Safety Report 21083594 (Version 5)
Quarter: 2022Q3

REPORT INFORMATION
  Report Type: Spontaneous
  Country: US (occurrence: US)
  Receive Date: 20220714
  Receipt Date: 20220915
  Transmission Date: 20221026
  Serious: Yes (Hospitalization, Other)
  Sender: FDA-Public Use
  Company Number: US-KARYOPHARM-2022KPT000778

PATIENT

DRUGS (11)
  1. XPOVIO [Suspect]
     Active Substance: SELINEXOR
     Indication: Plasma cell myeloma
     Dosage: 60 MG, WEEKLY
     Route: 048
     Dates: start: 20220708, end: 202207
  2. XPOVIO [Suspect]
     Active Substance: SELINEXOR
     Dosage: 60 MG, WEEKLY
     Route: 048
     Dates: start: 2022
  3. AMLODIPINE [Concomitant]
     Active Substance: AMLODIPINE BESYLATE
  4. DECADRON [Concomitant]
     Active Substance: DEXAMETHASONE
  5. POMALYST [Concomitant]
     Active Substance: POMALIDOMIDE
     Dosage: UNK
     Dates: end: 20220714
  6. VENLAFAXINE [Concomitant]
     Active Substance: VENLAFAXINE HYDROCHLORIDE
  7. XGEVA [Concomitant]
     Active Substance: DENOSUMAB
  8. PANTOPRAZOLE [Concomitant]
     Active Substance: PANTOPRAZOLE
  9. ZOFRAN [Concomitant]
     Active Substance: ONDANSETRON HYDROCHLORIDE
     Indication: Nausea
  10. ACYCLOVIR [Concomitant]
     Active Substance: ACYCLOVIR
  11. COMPAZINE [Concomitant]
     Active Substance: PROCHLORPERAZINE MALEATE

REACTIONS (6)
  - Full blood count abnormal [Unknown]
  - Blood creatinine increased [Recovered/Resolved]
  - White blood cell count decreased [Unknown]
  - Renal impairment [Unknown]
  - Nausea [Recovering/Resolving]
  - Platelet count decreased [Unknown]

NARRATIVE: CASE EVENT DATE: 20220101
